FAERS Safety Report 16838529 (Version 5)
Quarter: 2023Q4

REPORT INFORMATION
  Report Type: Spontaneous
  Country: US (occurrence: US)
  Receive Date: 20190923
  Receipt Date: 20231222
  Transmission Date: 20240110
  Serious: Yes (Hospitalization, Other)
  Sender: FDA-Public Use
  Company Number: US-GILEAD-2019-0429261

PATIENT
  Age: 54 Year
  Sex: Female
  Weight: 142.86 kg

DRUGS (35)
  1. TRUVADA [Suspect]
     Active Substance: EMTRICITABINE\TENOFOVIR DISOPROXIL FUMARATE
     Indication: HIV infection
     Dosage: UNK
     Route: 048
     Dates: start: 2010
  2. VIREAD [Suspect]
     Active Substance: TENOFOVIR DISOPROXIL FUMARATE
     Indication: HIV infection
     Dosage: UNK
     Route: 048
     Dates: start: 2010
  3. ATRIPLA [Suspect]
     Active Substance: EFAVIRENZ\EMTRICITABINE\TENOFOVIR DISOPROXIL FUMARATE
     Indication: HIV infection
     Dosage: UNK
     Route: 048
     Dates: start: 20090724, end: 20150321
  4. FUROSEMIDE [Concomitant]
     Active Substance: FUROSEMIDE
  5. EPIVIR [Concomitant]
     Active Substance: LAMIVUDINE
     Indication: HIV infection
  6. SUSTIVA [Concomitant]
     Active Substance: EFAVIRENZ
     Indication: HIV infection
  7. TIVICAY [Concomitant]
     Active Substance: DOLUTEGRAVIR SODIUM
     Indication: HIV infection
  8. ZIAGEN [Concomitant]
     Active Substance: ABACAVIR SULFATE
     Indication: HIV infection
  9. GABAPENTIN [Concomitant]
     Active Substance: GABAPENTIN
  10. HUMALOG MIX75/25 [Concomitant]
     Active Substance: INSULIN LISPRO
  11. LANTUS [Concomitant]
     Active Substance: INSULIN GLARGINE
  12. LYRICA [Concomitant]
     Active Substance: PREGABALIN
  13. METFORMIN [Concomitant]
     Active Substance: METFORMIN HYDROCHLORIDE
  14. ACTOS [Concomitant]
     Active Substance: PIOGLITAZONE HYDROCHLORIDE
  15. LISINOPRIL [Concomitant]
     Active Substance: LISINOPRIL
  16. METOPROLOL TARTRATE [Concomitant]
     Active Substance: METOPROLOL TARTRATE
  17. METOPROLOL SUCCINATE [Concomitant]
     Active Substance: METOPROLOL SUCCINATE
  18. AMLODIPINE [Concomitant]
     Active Substance: AMLODIPINE BESYLATE
  19. DILTIAZEM [Concomitant]
     Active Substance: DILTIAZEM
  20. LOSARTAN [Concomitant]
     Active Substance: LOSARTAN
  21. CARVEDILOL [Concomitant]
     Active Substance: CARVEDILOL
  22. LIPITOR [Concomitant]
     Active Substance: ATORVASTATIN CALCIUM
  23. TOLTERODINE [Concomitant]
     Active Substance: TOLTERODINE
  24. FLOVENT [Concomitant]
     Active Substance: FLUTICASONE PROPIONATE
  25. ALBUTEROL [Concomitant]
     Active Substance: ALBUTEROL
  26. BUPROPION [Concomitant]
     Active Substance: BUPROPION
  27. ATORVASTATIN [Concomitant]
     Active Substance: ATORVASTATIN
  28. OMEPRAZOLE [Concomitant]
     Active Substance: OMEPRAZOLE
  29. RANITIDINE HYDROCHLORIDE [Concomitant]
     Active Substance: RANITIDINE HYDROCHLORIDE
  30. TRADJENTA [Concomitant]
     Active Substance: LINAGLIPTIN
  31. MONTELUKAST [Concomitant]
     Active Substance: MONTELUKAST SODIUM
  32. FLUOXETINE [Concomitant]
     Active Substance: FLUOXETINE HYDROCHLORIDE
  33. SOVALDI [Concomitant]
     Active Substance: SOFOSBUVIR
  34. OLYSIO [Concomitant]
     Active Substance: SIMEPREVIR
  35. VITAMIN D [Concomitant]
     Active Substance: VITAMIN D NOS

REACTIONS (18)
  - Renal failure [Not Recovered/Not Resolved]
  - Chronic kidney disease [Not Recovered/Not Resolved]
  - Chronic kidney disease [Not Recovered/Not Resolved]
  - Chronic kidney disease [Not Recovered/Not Resolved]
  - Renal failure [Not Recovered/Not Resolved]
  - End stage renal disease [Not Recovered/Not Resolved]
  - Immobile [Not Recovered/Not Resolved]
  - Renal cyst [Unknown]
  - Renal pain [Unknown]
  - Loss of personal independence in daily activities [Not Recovered/Not Resolved]
  - Pain [Not Recovered/Not Resolved]
  - Depression [Unknown]
  - Anxiety [Not Recovered/Not Resolved]
  - Anhedonia [Not Recovered/Not Resolved]
  - Emotional distress [Not Recovered/Not Resolved]
  - Quality of life decreased [Not Recovered/Not Resolved]
  - Decreased activity [Not Recovered/Not Resolved]
  - Economic problem [Not Recovered/Not Resolved]

NARRATIVE: CASE EVENT DATE: 20130422
